FAERS Safety Report 20219033 (Version 1)
Quarter: 2021Q4

REPORT INFORMATION
  Report Type: Spontaneous
  Country: US (occurrence: None)
  Receive Date: 20211222
  Receipt Date: 20211222
  Transmission Date: 20220303
  Serious: Yes (Disabling, Other)
  Sender: FDA-Public Use
  Company Number: None

PATIENT
  Age: 74 Year
  Sex: Female
  Weight: 69.85 kg

DRUGS (2)
  1. METFORMIN [Suspect]
     Active Substance: METFORMIN HYDROCHLORIDE
     Indication: Glycosylated haemoglobin increased
     Dosage: FREQUENCY : DAILY;?
     Route: 048
     Dates: start: 20130805, end: 20200114
  2. METFORMIN [Suspect]
     Active Substance: METFORMIN HYDROCHLORIDE
     Dosage: FREQUENCY : DAILY;?
     Route: 048
     Dates: start: 20130805

REACTIONS (14)
  - Muscle disorder [None]
  - Mobility decreased [None]
  - Skin atrophy [None]
  - Asthenia [None]
  - Asthenia [None]
  - Peroneal nerve palsy [None]
  - Gait inability [None]
  - Myalgia [None]
  - Back pain [None]
  - Arthritis [None]
  - Muscle spasms [None]
  - Muscle spasms [None]
  - Hypertension [None]
  - Myocarditis [None]

NARRATIVE: CASE EVENT DATE: 20130805
